FAERS Safety Report 9505697 (Version 1)
Quarter: 2013Q1

REPORT INFORMATION
  Report Type: Spontaneous
  Country: US (occurrence: None)
  Receive Date: 20130225
  Receipt Date: 20130225
  Transmission Date: 20140127
  Serious: No
  Sender: FDA-Public Use
  Company Number: 365451

PATIENT
  Age: 63 Year
  Sex: Male

DRUGS (7)
  1. VICTOZA [Suspect]
     Indication: TYPE 2 DIABETES MELLITUS
     Route: 058
     Dates: start: 20121114
  2. AGGRENOX (ACETYLSALICYLIC ACID, DIPYRIDAMOLE) [Concomitant]
  3. ACTOS (PIOGLITAZONE HYDROCHLORIDE) [Concomitant]
  4. CRESTOR (ROSUVASTATIN CALCIUM) [Concomitant]
  5. GABAPENTIN (GABAPENTIN) [Concomitant]
  6. LISINOPRIL (LISINOPRIL) [Concomitant]
  7. TRICOR (ADENOSINE) [Concomitant]

REACTIONS (4)
  - Flushing [None]
  - Dizziness [None]
  - Pollakiuria [None]
  - Costovertebral angle tenderness [None]
